FAERS Safety Report 6054116-7 (Version None)
Quarter: 2009Q1

REPORT INFORMATION
  Report Type: 
  Country: None (occurrence: None)
  Receive Date: 20090127
  Receipt Date: 20090115
  Transmission Date: 20090719
  Serious: Yes (Other)
  Sender: FDA-Public Use
  Company Number: US-PFIZER INC-2006099748

PATIENT
  Sex: Female
  Weight: 55.782 kg

DRUGS (18)
  1. LYRICA [Suspect]
     Indication: ANXIETY DISORDER
     Dates: start: 20051101
  2. LYRICA [Suspect]
     Indication: ANXIETY
  3. NEURONTIN [Suspect]
     Indication: POOR QUALITY SLEEP
     Dates: start: 20070101
  4. NEURONTIN [Suspect]
     Indication: ANXIETY
  5. KLONOPIN [Concomitant]
     Indication: ANXIETY
     Dosage: UNK
  6. PROZAC [Concomitant]
     Indication: ANXIETY
     Dosage: UNK
  7. ALL OTHER THERAPEUTIC PRODUCTS [Concomitant]
  8. DULCOLAX [Concomitant]
  9. ZETIA [Concomitant]
     Indication: BLOOD CHOLESTEROL INCREASED
  10. ESTRACE [Concomitant]
     Dosage: 1 MG, UNK
  11. PROGESTERONE [Concomitant]
  12. VICODIN [Concomitant]
     Indication: PAIN IN EXTREMITY
  13. VICODIN [Concomitant]
     Indication: BACK PAIN
  14. PROVERA [Concomitant]
     Dosage: UNK
  15. CRESTOR [Concomitant]
     Indication: BLOOD CHOLESTEROL INCREASED
     Dosage: UNK
  16. FLUOROMETHOLONE [Concomitant]
     Indication: IRITIS
     Dosage: UNK
     Route: 047
  17. OPHTHALMOLOGICALS [Concomitant]
     Indication: EYE INFLAMMATION
     Dosage: UNK
     Route: 047
  18. ADVIL LIQUI-GELS [Concomitant]
     Indication: HEADACHE
     Dosage: UNK

REACTIONS (14)
  - ANXIETY [None]
  - BACK INJURY [None]
  - CONSTIPATION [None]
  - DRUG INEFFECTIVE [None]
  - EYE INFECTION [None]
  - EYE PAIN [None]
  - FALL [None]
  - FRACTURED SACRUM [None]
  - INTENTIONAL DRUG MISUSE [None]
  - INTRAOCULAR PRESSURE INCREASED [None]
  - NERVOUSNESS [None]
  - RIB FRACTURE [None]
  - SOMNOLENCE [None]
  - WEIGHT INCREASED [None]
